FAERS Safety Report 12251716 (Version 2)
Quarter: 2016Q2

REPORT INFORMATION
  Report Type: Spontaneous
  Country: US (occurrence: US)
  Receive Date: 20160411
  Receipt Date: 20160511
  Transmission Date: 20160815
  Serious: Yes (Other)
  Sender: FDA-Public Use
  Company Number: US-HOSPIRA-3233966

PATIENT
  Age: 36 Year
  Sex: Female
  Weight: 65.77 kg

DRUGS (1)
  1. LIDOCAINE HYDROCHLORIDE. [Suspect]
     Active Substance: LIDOCAINE HYDROCHLORIDE
     Indication: ANAESTHESIA PROCEDURE
     Dosage: ONE TIME
     Route: 015
     Dates: start: 20160328, end: 20160328

REACTIONS (6)
  - Disorientation [Recovered/Resolved]
  - Pallor [Recovered/Resolved]
  - Cerebrovascular accident [Recovered/Resolved]
  - Incorrect route of drug administration [Recovered/Resolved]
  - Swelling [Recovered/Resolved]
  - Seizure [Recovered/Resolved]

NARRATIVE: CASE EVENT DATE: 20160328
